FAERS Safety Report 13296200 (Version 3)
Quarter: 2018Q3

REPORT INFORMATION
  Report Type: Report from Study
  Country: US (occurrence: US)
  Receive Date: 20170304
  Receipt Date: 20180921
  Transmission Date: 20181010
  Serious: No
  Sender: FDA-Public Use
  Company Number: US-ASTRAZENECA-2017SE22973

PATIENT
  Sex: Female
  Weight: 94.8 kg

DRUGS (10)
  1. LASIX [Suspect]
     Active Substance: FUROSEMIDE
     Indication: DIURETIC THERAPY
     Route: 048
  2. SPIRIVA [Concomitant]
     Active Substance: TIOTROPIUM BROMIDE MONOHYDRATE
     Indication: CHRONIC OBSTRUCTIVE PULMONARY DISEASE
     Route: 055
  3. KLOR?CON POTASSIUM [Concomitant]
     Indication: CELLULITIS
     Route: 048
  4. CARVEDILOL. [Concomitant]
     Active Substance: CARVEDILOL
  5. METFORMIN [Concomitant]
     Active Substance: METFORMIN HYDROCHLORIDE
  6. GABAPENTIN. [Concomitant]
     Active Substance: GABAPENTIN
  7. KLOR?CON POTASSIUM [Concomitant]
     Indication: MUSCLE SPASMS
     Route: 048
  8. GLIPIZIDE. [Concomitant]
     Active Substance: GLIPIZIDE
  9. LASIX [Suspect]
     Active Substance: FUROSEMIDE
     Indication: CELLULITIS
     Route: 048
  10. DALIRESP [Suspect]
     Active Substance: ROFLUMILAST
     Indication: CHRONIC OBSTRUCTIVE PULMONARY DISEASE
     Dosage: ONCE A DAY
     Route: 048
     Dates: start: 2016

REACTIONS (7)
  - Dyspnoea [Unknown]
  - Pollakiuria [Unknown]
  - Dyspnoea exertional [Unknown]
  - Muscle spasms [Unknown]
  - Weight decreased [Unknown]
  - Energy increased [Unknown]
  - Drug dose omission [Unknown]
